FAERS Safety Report 19261475 (Version 1)
Quarter: 2021Q2

REPORT INFORMATION
  Report Type: Spontaneous
  Country: FR (occurrence: FR)
  Receive Date: 20210515
  Receipt Date: 20210515
  Transmission Date: 20210717
  Serious: Yes (Other)
  Sender: FDA-Public Use
  Company Number: FR-AUROBINDO-AUR-APL-2021-019182

PATIENT
  Sex: Male

DRUGS (4)
  1. CARMUSTINE. [Suspect]
     Active Substance: CARMUSTINE
     Indication: PERIPHERAL T-CELL LYMPHOMA UNSPECIFIED RECURRENT
     Dosage: 300 MILLIGRAM/SQ. METER
     Route: 042
     Dates: start: 20161124, end: 20161124
  2. CYTARABINE. [Suspect]
     Active Substance: CYTARABINE
     Indication: PERIPHERAL T-CELL LYMPHOMA UNSPECIFIED
     Dosage: 400 MILLIGRAM/SQ. METER
     Route: 042
     Dates: start: 20161125, end: 20161128
  3. MELPHALAN. [Suspect]
     Active Substance: MELPHALAN
     Indication: PERIPHERAL T-CELL LYMPHOMA UNSPECIFIED
     Dosage: 140 MILLIGRAM/SQ. METER
     Route: 042
     Dates: start: 20161129, end: 20161129
  4. ETOPOSIDE PHOSPHATE [Suspect]
     Active Substance: ETOPOSIDE PHOSPHATE
     Indication: PERIPHERAL T-CELL LYMPHOMA UNSPECIFIED
     Dosage: 200 MILLIGRAM/SQ. METER
     Route: 042
     Dates: start: 20161125, end: 20161128

REACTIONS (3)
  - Neutropenic sepsis [Recovered/Resolved]
  - Stomatitis [Recovered/Resolved]
  - Neutropenic colitis [Recovered/Resolved]

NARRATIVE: CASE EVENT DATE: 20161201
